FAERS Safety Report 9068577 (Version 2)
Quarter: 2013Q1

REPORT INFORMATION
  Report Type: Spontaneous
  Country: US (occurrence: US)
  Receive Date: 20130206
  Receipt Date: 20130228
  Transmission Date: 20140127
  Serious: Yes (Hospitalization)
  Sender: FDA-Public Use
  Company Number: US-ELI_LILLY_AND_COMPANY-US201201001787

PATIENT
  Age: 71 None
  Sex: Female
  Weight: 61.4 kg

DRUGS (14)
  1. FORTEO [Suspect]
     Indication: OSTEOPOROSIS
     Dosage: 20 UG, QD
     Route: 058
     Dates: start: 2011
  2. FORTEO [Suspect]
     Dosage: 20 UG, QD
     Route: 058
  3. FORTEO [Suspect]
     Dosage: 20 UG, QD
     Route: 058
  4. FORTEO [Suspect]
     Dosage: 20 UG, QD
     Route: 058
  5. FORTEO [Suspect]
     Dosage: 20 UG, QD
     Route: 058
  6. FORTEO [Suspect]
     Dosage: 20 UG, QD
     Route: 058
  7. LISINOPRIL [Concomitant]
     Dosage: 20 MG, QD
  8. TRAZODONE [Concomitant]
     Indication: SLEEP DISORDER
     Dosage: 50 MG, EACH EVENING
  9. CALCIUM [Concomitant]
     Dosage: UNK UNK, QD
  10. VITAMIN D [Concomitant]
     Dosage: UNK UNK, QD
  11. B COMPLEX [Concomitant]
     Dosage: UNK, QD
  12. VITAMIN C [Concomitant]
     Dosage: UNK, QD
  13. ASTAXANTHIN [Concomitant]
     Indication: OSTEOPOROSIS
     Dosage: 20 UG, QD
     Dates: start: 2011
  14. ASTAXANTHIN [Concomitant]
     Dosage: 20 UG, QD

REACTIONS (24)
  - Herpes zoster [Recovering/Resolving]
  - Pain [Unknown]
  - Hip fracture [Unknown]
  - Cardiac disorder [Recovered/Resolved]
  - Nephrolithiasis [Unknown]
  - Cystitis [Unknown]
  - Nasopharyngitis [Unknown]
  - Malaise [Not Recovered/Not Resolved]
  - Bone pain [Not Recovered/Not Resolved]
  - Sleep disorder due to a general medical condition [Not Recovered/Not Resolved]
  - Musculoskeletal chest pain [Unknown]
  - Musculoskeletal pain [Unknown]
  - Pain in extremity [Not Recovered/Not Resolved]
  - Arthralgia [Unknown]
  - Pain [Not Recovered/Not Resolved]
  - Medication error [Unknown]
  - Intentional drug misuse [Not Recovered/Not Resolved]
  - Urinary tract infection [Recovered/Resolved]
  - Stress [Unknown]
  - Cholecystectomy [Unknown]
  - Vision blurred [Unknown]
  - Dizziness [Unknown]
  - Tremor [Unknown]
  - Nerve injury [Unknown]
